FAERS Safety Report 22082725 (Version 1)
Quarter: 2023Q1

REPORT INFORMATION
  Report Type: Spontaneous
  Country: US (occurrence: US)
  Receive Date: 20230310
  Receipt Date: 20230310
  Transmission Date: 20230418
  Serious: No
  Sender: FDA-Public Use
  Company Number: US-MYOVANT SCIENCES GMBH-2022MYSCI1000245

PATIENT
  Age: 68 Year
  Sex: Male

DRUGS (4)
  1. ORGOVYX [Suspect]
     Active Substance: RELUGOLIX
     Indication: Prostate cancer
     Dosage: UNK, QD
     Route: 048
     Dates: start: 20220609
  2. ORGOVYX [Suspect]
     Active Substance: RELUGOLIX
     Dosage: UNK, QD
     Route: 048
     Dates: start: 20220610
  3. RIMEGEPANT SULFATE [Suspect]
     Active Substance: RIMEGEPANT SULFATE
     Indication: Migraine
     Dosage: UNK
     Route: 065
  4. IMITREX [Suspect]
     Active Substance: SUMATRIPTAN SUCCINATE
     Indication: Migraine
     Dosage: UNK
     Route: 065

REACTIONS (3)
  - Migraine [Unknown]
  - Diarrhoea [Not Recovered/Not Resolved]
  - Constipation [Unknown]

NARRATIVE: CASE EVENT DATE: 20220601
